FAERS Safety Report 5192825-2 (Version None)
Quarter: 2006Q4

REPORT INFORMATION
  Report Type: 
  Country: None (occurrence: None)
  Receive Date: 20061228
  Receipt Date: 20051118
  Transmission Date: 20070319
  Serious: Yes (Other)
  Sender: FDA-Public Use
  Company Number: US-GLAXOSMITHKLINE-A0583089A

PATIENT
  Sex: Male

DRUGS (2)
  1. FLONASE [Suspect]
     Dosage: 4PUFF PER DAY
     Route: 045
  2. AUGMENTIN '125' [Concomitant]

REACTIONS (2)
  - EPISTAXIS [None]
  - NASAL SEPTUM PERFORATION [None]
